FAERS Safety Report 6169458-4 (Version None)
Quarter: 2009Q2

REPORT INFORMATION
  Report Type: 
  Country: None (occurrence: None)
  Receive Date: 20090428
  Receipt Date: 20090423
  Transmission Date: 20091009
  Serious: Yes (Death, Hospitalization)
  Sender: FDA-Public Use
  Company Number: PHHY2009BR15478

PATIENT
  Age: 65 Year
  Sex: Female

DRUGS (2)
  1. FORASEQ [Suspect]
     Indication: DYSPNOEA
     Dosage: UNK
     Dates: start: 20050101
  2. FORASEQ [Suspect]
     Indication: EMPHYSEMA

REACTIONS (3)
  - LUNG DISORDER [None]
  - PNEUMONIA [None]
  - WRONG DRUG ADMINISTERED [None]
